FAERS Safety Report 7425620-1 (Version None)
Quarter: 2011Q2

REPORT INFORMATION
  Report Type: 
  Country: None (occurrence: None)
  Receive Date: 20110414
  Receipt Date: 20110329
  Transmission Date: 20111010
  Serious: Yes (Death)
  Sender: FDA-Public Use
  Company Number: 2011030013

PATIENT
  Age: 34 Year
  Sex: Female
  Weight: 115.6672 kg

DRUGS (6)
  1. CARISOPRODOL (CARISOPRODOL) [Suspect]
  2. OXYMORPHONE [Suspect]
  3. CYCLOBENZAPRINE [Suspect]
  4. OXYCODONE HCL [Concomitant]
  5. BUTALBITAL (BUTALBITAL) [Suspect]
  6. DIPHENHYDRAMINE HCL [Suspect]

REACTIONS (5)
  - TOXICITY TO VARIOUS AGENTS [None]
  - VOMITING [None]
  - ACCIDENTAL DEATH [None]
  - CIRCULATORY COLLAPSE [None]
  - ASPIRATION [None]
